FAERS Safety Report 13358820 (Version 1)
Quarter: 2017Q1

REPORT INFORMATION
  Report Type: Spontaneous
  Country: KR (occurrence: KR)
  Receive Date: 20170322
  Receipt Date: 20170322
  Transmission Date: 20170429
  Serious: Yes (Hospitalization, Other)
  Sender: FDA-Public Use
  Company Number: KR-009507513-1703KOR008861

PATIENT
  Age: 33 Year
  Sex: Female
  Weight: 63.7 kg

DRUGS (18)
  1. DUROGESIC [Concomitant]
     Active Substance: FENTANYL
     Indication: PAIN
     Dosage: 1 PATCH, QD (STRENGTH: 25 MCG/H/ 10.5 CM3)
     Route: 003
     Dates: start: 20161202
  2. VINCRISTINE SULFATE. [Concomitant]
     Active Substance: VINCRISTINE SULFATE
     Indication: ACUTE LYMPHOCYTIC LEUKAEMIA
     Dosage: 2 MG, QD
     Route: 042
     Dates: start: 20161205, end: 20161205
  3. VINCRISTINE SULFATE. [Concomitant]
     Active Substance: VINCRISTINE SULFATE
     Dosage: 2 MG, QD
     Route: 042
     Dates: start: 20161212, end: 20161212
  4. KINPOIN [Concomitant]
     Indication: PAIN
     Dosage: 2 ML, QD
     Route: 030
     Dates: start: 20161129, end: 20161130
  5. KINPOIN [Concomitant]
     Dosage: 2 ML, BID
     Route: 042
     Dates: start: 20161130
  6. ESOMEZOL (ESOMEPRAZOLE STRONTIUM) [Concomitant]
     Active Substance: ESOMEPRAZOLE STRONTIUM
     Indication: PROPHYLAXIS OF NAUSEA AND VOMITING
     Dosage: 1 TABLET, QD
     Route: 048
     Dates: start: 20161201
  7. ENDOXAN [Concomitant]
     Active Substance: CYCLOPHOSPHAMIDE
     Indication: ACUTE LYMPHOCYTIC LEUKAEMIA
     Dosage: 500 MG, QD
     Route: 042
     Dates: start: 20161202, end: 20161204
  8. DEXAMETHASONE PHOSPHATE [Concomitant]
     Active Substance: DEXAMETHASONE PHOSPHATE
     Indication: PREMEDICATION
     Dosage: 40 MG, QD
     Route: 042
     Dates: start: 20161202, end: 20161205
  9. ALOXI [Concomitant]
     Active Substance: PALONOSETRON HYDROCHLORIDE
     Indication: PREMEDICATION
     Dosage: 0.25 ML, QD
     Route: 042
     Dates: start: 20161202, end: 20161202
  10. DICAROL [Concomitant]
     Indication: PAIN
     Dosage: 1 TABLET, TID
     Route: 048
     Dates: start: 20161130
  11. DOXORUBICIN HYDROCHLORIDE. [Concomitant]
     Active Substance: DOXORUBICIN HYDROCHLORIDE
     Indication: ACUTE LYMPHOCYTIC LEUKAEMIA
     Dosage: 80 MG, QD
     Route: 042
     Dates: start: 20161205, end: 20161205
  12. TRIDOL (TRAMADOL HYDROCHLORIDE) [Concomitant]
     Indication: PAIN
     Dosage: 50 ML, QD
     Route: 042
     Dates: start: 20161129, end: 20161129
  13. EMEND (FOSAPREPITANT DIMEGLUMINE) [Suspect]
     Active Substance: FOSAPREPITANT DIMEGLUMINE
     Indication: PROPHYLAXIS OF NAUSEA AND VOMITING
     Dosage: 150 MG, ONCE
     Route: 042
     Dates: start: 20161202, end: 20161202
  14. DEXAMETHASONE PHOSPHATE [Concomitant]
     Active Substance: DEXAMETHASONE PHOSPHATE
     Indication: PROPHYLAXIS
     Dosage: 40 MG, QD
     Route: 042
     Dates: start: 20161212, end: 20161215
  15. KETOROLAC TROMETHAMINE. [Concomitant]
     Active Substance: KETOROLAC TROMETHAMINE
     Indication: PAIN
     Dosage: 30 MG, QD
     Route: 042
     Dates: start: 20161129, end: 20161129
  16. ULTRACET [Concomitant]
     Active Substance: ACETAMINOPHEN\TRAMADOL HYDROCHLORIDE
     Indication: PAIN
     Dosage: 1 TABLET, TID
     Dates: start: 20161130
  17. MUCOSTA [Concomitant]
     Active Substance: REBAMIPIDE
     Indication: PROPHYLAXIS OF NAUSEA AND VOMITING
     Dosage: 1 TABLET, TID
     Route: 048
     Dates: start: 20161130
  18. PETHIDINE HCL JEIL [Concomitant]
     Indication: PAIN
     Dosage: 25 MG, QD
     Route: 042
     Dates: start: 20161201

REACTIONS (6)
  - Hypoperfusion [Recovered/Resolved]
  - Mucosal inflammation [Recovering/Resolving]
  - Nausea [Recovered/Resolved]
  - Alanine aminotransferase increased [Recovering/Resolving]
  - Blood potassium decreased [Recovering/Resolving]
  - Neutropenia [Recovering/Resolving]

NARRATIVE: CASE EVENT DATE: 20161203
